FAERS Safety Report 4774649-0 (Version None)
Quarter: 2005Q3

REPORT INFORMATION
  Report Type: 
  Country: None (occurrence: None)
  Receive Date: 20050919
  Receipt Date: 20050908
  Transmission Date: 20060218
  Serious: Yes (Hospitalization)
  Sender: FDA-Public Use
  Company Number: 2005126160

PATIENT
  Sex: Female

DRUGS (4)
  1. HEMABATE [Suspect]
     Indication: POSTPARTUM HAEMORRHAGE
  2. ERGOMETRINE (ERGOMETRINE) [Concomitant]
  3. OXYTOCIN (OXYTOCIN) [Concomitant]
  4. . [Concomitant]

REACTIONS (2)
  - BRONCHOSPASM [None]
  - THERAPY NON-RESPONDER [None]
